FAERS Safety Report 21763234 (Version 1)
Quarter: 2022Q4

REPORT INFORMATION
  Report Type: Spontaneous
  Country: US (occurrence: None)
  Receive Date: 20221221
  Receipt Date: 20221221
  Transmission Date: 20230113
  Serious: No
  Sender: FDA-Public Use
  Company Number: None

PATIENT
  Age: 59 Year
  Sex: Male
  Weight: 78.74 kg

DRUGS (7)
  1. CAPECITABINE [Suspect]
     Active Substance: CAPECITABINE
     Indication: Colon cancer
     Dosage: 2000MG TWICE DAILY ORAL?
     Route: 048
     Dates: start: 202211, end: 20221205
  2. GRANIX [Concomitant]
     Active Substance: TBO-FILGRASTIM
  3. LIDOCAINE [Concomitant]
     Active Substance: LIDOCAINE
  4. OMEPRAZOLE [Concomitant]
     Active Substance: OMEPRAZOLE
  5. RITALIN [Concomitant]
     Active Substance: METHYLPHENIDATE HYDROCHLORIDE
  6. SUCRALFATE [Concomitant]
     Active Substance: SUCRALFATE
  7. ZOFRAN [Concomitant]
     Active Substance: ONDANSETRON HYDROCHLORIDE

REACTIONS (2)
  - Hospice care [None]
  - Therapy cessation [None]

NARRATIVE: CASE EVENT DATE: 20221205
